FAERS Safety Report 10962444 (Version 1)
Quarter: 2015Q1

REPORT INFORMATION
  Report Type: Spontaneous
  Country: US (occurrence: None)
  Receive Date: 20150226
  Receipt Date: 20150226
  Transmission Date: 20150721
  Serious: Yes (Other)
  Sender: FDA-Public Use
  Company Number: TPA2012A03046

PATIENT
  Age: 71 Year
  Sex: Male
  Weight: 90.72 kg

DRUGS (6)
  1. METFORMIN [Concomitant]
     Active Substance: METFORMIN HYDROCHLORIDE
  2. ACTOS [Suspect]
     Active Substance: PIOGLITAZONE HYDROCHLORIDE
     Indication: TYPE 2 DIABETES MELLITUS
     Dates: start: 20020314, end: 20110621
  3. DIABETA [Concomitant]
     Active Substance: GLYBURIDE
  4. GLUCOTROL [Concomitant]
     Active Substance: GLIPIZIDE
  5. AVANDIA (ROSIGLITAZONE MALEATE) [Concomitant]
  6. FORMATE (METFORMIN HYDROCHLORIDE) [Concomitant]

REACTIONS (1)
  - Bladder cancer [None]

NARRATIVE: CASE EVENT DATE: 20090107
